FAERS Safety Report 6292789-4 (Version None)
Quarter: 2009Q3

REPORT INFORMATION
  Report Type: 
  Country: None (occurrence: None)
  Receive Date: 20090731
  Receipt Date: 20090722
  Transmission Date: 20100115
  Serious: Yes (Death)
  Sender: FDA-Public Use
  Company Number: BR-PFIZER INC-2009244321

PATIENT
  Age: 78 Year

DRUGS (6)
  1. REVATIO [Suspect]
     Indication: PULMONARY ARTERIAL HYPERTENSION
     Dosage: 20 MG, 2X/DAY
     Dates: start: 20090710
  2. COZAAR [Concomitant]
  3. SIMVASTATIN [Concomitant]
  4. ALLOPURINOL [Concomitant]
  5. FRONTAL [Concomitant]
  6. TAPAZOL [Concomitant]

REACTIONS (3)
  - INFECTION [None]
  - PANCREATITIS [None]
  - PULMONARY HYPERTENSION [None]
